FAERS Safety Report 25131861 (Version 1)
Quarter: 2025Q1

REPORT INFORMATION
  Report Type: Spontaneous
  Country: US (occurrence: US)
  Receive Date: 20250327
  Receipt Date: 20250327
  Transmission Date: 20250408
  Serious: No
  Sender: PRINSTON PHARMACEUTICAL
  Company Number: US-PRINSTON PHARMACEUTICAL INC.-2024PRN00244

PATIENT
  Sex: Female

DRUGS (3)
  1. CLONIDINE HYDROCHLORIDE [Suspect]
     Active Substance: CLONIDINE HYDROCHLORIDE
     Dosage: 0.05 MG, 2X/DAY (MORNING AND NIGHT)
     Route: 048
     Dates: end: 20240521
  2. CLONIDINE HYDROCHLORIDE [Suspect]
     Active Substance: CLONIDINE HYDROCHLORIDE
     Dosage: 0.1 MG, 2X/DAY
     Route: 048
     Dates: start: 20240522
  3. FLONASE [Suspect]
     Active Substance: FLUTICASONE PROPIONATE
     Indication: Seasonal allergy

REACTIONS (1)
  - Salivary hyposecretion [Not Recovered/Not Resolved]

NARRATIVE: CASE EVENT DATE: 20240101
